FAERS Safety Report 7948190-8 (Version None)
Quarter: 2011Q4

REPORT INFORMATION
  Report Type: 
  Country: None (occurrence: None)
  Receive Date: 20111125
  Receipt Date: 20111116
  Transmission Date: 20120403
  Serious: Yes (Other)
  Sender: FDA-Public Use
  Company Number: 2011P1010764

PATIENT
  Age: 65 Year
  Sex: Female
  Weight: 81.1939 kg

DRUGS (10)
  1. VITAMIN D [Concomitant]
  2. ASPIRIN [Concomitant]
  3. CORTISONE ACETATE INJ [Concomitant]
  4. VITAMIN D [Concomitant]
  5. UNSPECIFIED VITAMIN FOR HEART [Concomitant]
  6. GLYBURIDE [Suspect]
     Indication: DIABETES MELLITUS
     Dosage: 1 TAB; BID;
     Dates: start: 20091101
  7. FOLIC ACID [Concomitant]
  8. VITAMIN B6 [Concomitant]
  9. FOLIC ACID [Concomitant]
  10. OMEGA 3 FATTY ACIDS [Concomitant]

REACTIONS (1)
  - ALOPECIA [None]
